FAERS Safety Report 4777156-4 (Version None)
Quarter: 2005Q3

REPORT INFORMATION
  Report Type: 
  Country: None (occurrence: None)
  Receive Date: 20050923
  Receipt Date: 20050914
  Transmission Date: 20060218
  Serious: Yes (Disabling)
  Sender: FDA-Public Use
  Company Number: US-ROCHE-417933

PATIENT
  Sex: Male

DRUGS (1)
  1. ACCUTANE [Suspect]
     Indication: DRUG USE FOR UNKNOWN INDICATION
     Route: 048

REACTIONS (10)
  - AFFECT LABILITY [None]
  - AGGRESSION [None]
  - ANGER [None]
  - AUTOMATISM [None]
  - DELIRIUM [None]
  - DEPRESSION [None]
  - EMOTIONAL DISTRESS [None]
  - GASTROINTESTINAL DISORDER [None]
  - IMPULSE-CONTROL DISORDER [None]
  - INFLAMMATORY BOWEL DISEASE [None]
